FAERS Safety Report 9711577 (Version 1)
Quarter: 2013Q4

REPORT INFORMATION
  Report Type: Spontaneous
  Country: US (occurrence: None)
  Receive Date: 20131125
  Receipt Date: 20131125
  Transmission Date: 20140711
  Serious: Yes (Disabling)
  Sender: FDA-Public Use
  Company Number: None

PATIENT
  Age: 72 Year
  Sex: Female
  Weight: 73.03 kg

DRUGS (1)
  1. ALENDRONATE SODIUM [Suspect]
     Indication: OSTEOPOROSIS
     Dosage: 1 PILL  ONCE/WEEK  TAKEN BY MOUTH
     Route: 048
     Dates: start: 20130901, end: 20131001

REACTIONS (4)
  - Pain in extremity [None]
  - Arthralgia [None]
  - Movement disorder [None]
  - Pain [None]
